FAERS Safety Report 4640724-4 (Version None)
Quarter: 2005Q2

REPORT INFORMATION
  Report Type: 
  Country: None (occurrence: None)
  Receive Date: 20050419
  Receipt Date: 20050407
  Transmission Date: 20051028
  Serious: No
  Sender: FDA-Public Use
  Company Number: 805#1#2005-00017

PATIENT
  Age: 3 Day
  Sex: Female

DRUGS (2)
  1. ALPROSTADIL [Suspect]
     Indication: HEART DISEASE CONGENITAL
     Dosage: INTRAVENOUS DRIP
     Route: 041
     Dates: start: 20050225, end: 20050227
  2. LASIX [Concomitant]

REACTIONS (3)
  - APNOEIC ATTACK [None]
  - HYPONATRAEMIA [None]
  - PYREXIA [None]
